FAERS Safety Report 7656900-2 (Version None)
Quarter: 2011Q3

REPORT INFORMATION
  Report Type: 
  Country: None (occurrence: None)
  Receive Date: 20110804
  Receipt Date: 20110722
  Transmission Date: 20111222
  Serious: Yes (Other)
  Sender: FDA-Public Use
  Company Number: US-CELGENEUS-163-21880-11072678

PATIENT
  Age: 76 Year
  Sex: Female

DRUGS (11)
  1. REVLIMID [Suspect]
     Indication: MYELOFIBROSIS
     Dosage: 5 MILLIGRAM
     Route: 048
     Dates: start: 20110622
  2. METOLAZONE [Concomitant]
     Route: 065
  3. CLONIDINE [Concomitant]
     Route: 065
  4. DECADRON [Concomitant]
     Dosage: 20 MILLIGRAM
     Route: 065
     Dates: start: 20110622, end: 20110713
  5. COUMADIN [Concomitant]
     Route: 065
  6. METOPROLOL TARTRATE [Concomitant]
     Route: 065
  7. TORSEMIDE [Concomitant]
     Route: 065
  8. TEMAZEPAM [Concomitant]
     Route: 065
  9. KLOR-CON [Concomitant]
     Route: 065
  10. REVLIMID [Suspect]
     Dosage: 5 MILLIGRAM
     Route: 048
     Dates: start: 20110706, end: 20110713
  11. ALLOPURINOL [Concomitant]
     Route: 065

REACTIONS (2)
  - FLUID RETENTION [None]
  - DYSPHONIA [None]
